FAERS Safety Report 22030783 (Version 1)
Quarter: 2023Q1

REPORT INFORMATION
  Report Type: Spontaneous
  Country: US (occurrence: None)
  Receive Date: 20230221
  Receipt Date: 20230221
  Transmission Date: 20230417
  Serious: Yes (Death)
  Sender: FDA-Public Use
  Company Number: None

PATIENT
  Sex: Male
  Weight: 79.83 kg

DRUGS (17)
  1. YONSA [Suspect]
     Active Substance: ABIRATERONE ACETATE
     Indication: Prostate cancer
     Dosage: 500MG DAILY ORAL
     Route: 048
     Dates: start: 20220323
  2. METHYLPREDNISOLONE [Suspect]
     Active Substance: METHYLPREDNISOLONE
     Indication: Prostate cancer
     Dosage: 4MG TWICE DAILY ORAL?
     Route: 048
     Dates: start: 20220323
  3. ATORVASTATIN [Concomitant]
  4. CALCIUM [Concomitant]
     Active Substance: CALCIUM
  5. ACETATE [Concomitant]
  6. EPOETIN ALFA [Concomitant]
  7. FOLIC ACID [Concomitant]
  8. FUROSEMIDE [Concomitant]
  9. LACTOBACILLUS [Concomitant]
  10. LINZESS [Concomitant]
  11. LOPRESSOR [Concomitant]
  12. METHYLPREDNISOLONE [Concomitant]
  13. MIRALAX [Concomitant]
  14. MULTIVITAMIN [Concomitant]
  15. PEPCID [Concomitant]
  16. TYLENOL 8 HOUR [Concomitant]
  17. ZYRTEC ALLERGY [Concomitant]

REACTIONS (1)
  - Death [None]
